FAERS Safety Report 5232256-X (Version None)
Quarter: 2007Q1

REPORT INFORMATION
  Report Type: 
  Country: None (occurrence: None)
  Receive Date: 20070207
  Receipt Date: 20070125
  Transmission Date: 20070707
  Serious: Yes (Other)
  Sender: FDA-Public Use
  Company Number: PHRM2007FR00654

PATIENT
  Age: 13 Year
  Sex: Female

DRUGS (3)
  1. TOBI [Suspect]
     Dates: start: 20060501, end: 20061221
  2. FORTUM [Concomitant]
     Route: 042
  3. NEBCIN [Concomitant]
     Route: 042

REACTIONS (1)
  - HENOCH-SCHONLEIN PURPURA [None]
